FAERS Safety Report 7373657-3 (Version None)
Quarter: 2011Q1

REPORT INFORMATION
  Report Type: 
  Country: None (occurrence: None)
  Receive Date: 20110325
  Receipt Date: 20110318
  Transmission Date: 20110831
  Serious: Yes (Life-Threatening)
  Sender: FDA-Public Use
  Company Number: ES-ELI_LILLY_AND_COMPANY-ES201103005680

PATIENT
  Age: 79 Year
  Sex: Female

DRUGS (3)
  1. METFORMIN [Concomitant]
     Dosage: UNK, TID
  2. DIAMICRON [Concomitant]
     Dosage: UNK, TID
  3. HUMALOG [Suspect]
     Indication: TYPE 2 DIABETES MELLITUS
     Dosage: 14 U, EACH EVENING
     Route: 058
     Dates: start: 20110315

REACTIONS (1)
  - HYPOGLYCAEMIC COMA [None]
